FAERS Safety Report 7248254-0 (Version None)
Quarter: 2011Q1

REPORT INFORMATION
  Report Type: 
  Country: None (occurrence: None)
  Receive Date: 20110127
  Receipt Date: 20101220
  Transmission Date: 20110831
  Serious: Yes (Other)
  Sender: FDA-Public Use
  Company Number: US-BAYER-201018580NA

PATIENT
  Sex: Female
  Weight: 95.238 kg

DRUGS (8)
  1. VICODIN [Concomitant]
  2. MOTRIN [Concomitant]
     Indication: ANALGESIC THERAPY
     Dosage: UNK
  3. YAZ [Suspect]
     Indication: PRODUCT USED FOR UNKNOWN INDICATION
     Route: 048
  4. REGLAN [Concomitant]
  5. PERCOCET [Concomitant]
     Indication: ABDOMINAL PAIN
  6. YASMIN [Suspect]
     Indication: PRODUCT USED FOR UNKNOWN INDICATION
     Route: 048
  7. UNCODEABLE ^UNCLASSIFIABLE^ [Concomitant]
     Indication: ANALGESIC THERAPY
  8. AUGMENTIN '125' [Concomitant]

REACTIONS (6)
  - NAUSEA [None]
  - PAIN [None]
  - ABDOMINAL PAIN [None]
  - VOMITING [None]
  - CHOLELITHIASIS [None]
  - DIARRHOEA [None]
